FAERS Safety Report 11556478 (Version 1)
Quarter: 2015Q3

REPORT INFORMATION
  Report Type: Spontaneous
  Country: US (occurrence: US)
  Receive Date: 20150925
  Receipt Date: 20150925
  Transmission Date: 20151125
  Serious: No
  Sender: FDA-Public Use
  Company Number: US-AQUA-2015AQU000007

PATIENT
  Age: 65 Year
  Sex: Female

DRUGS (2)
  1. FLUOROPLEX [Suspect]
     Active Substance: FLUOROURACIL
     Indication: ACTINIC KERATOSIS
     Dosage: UNK, QD
     Route: 061
     Dates: start: 201401
  2. FLUOROPLEX [Suspect]
     Active Substance: FLUOROURACIL
     Dosage: UNK UNK, QD
     Route: 061
     Dates: start: 20150221

REACTIONS (7)
  - Pain [Recovered/Resolved]
  - Erythema [Recovered/Resolved]
  - Drug ineffective [Unknown]
  - Poor quality sleep [Recovered/Resolved]
  - Pruritus [Recovered/Resolved]
  - Skin burning sensation [Recovered/Resolved]
  - Dry mouth [Recovered/Resolved]

NARRATIVE: CASE EVENT DATE: 20150221
